FAERS Safety Report 6032346-8 (Version None)
Quarter: 2009Q1

REPORT INFORMATION
  Report Type: 
  Country: None (occurrence: None)
  Receive Date: 20090109
  Receipt Date: 20090105
  Transmission Date: 20090719
  Serious: Yes (Other)
  Sender: FDA-Public Use
  Company Number: SE-JNJFOC-20081200769

PATIENT
  Age: 27 Year
  Sex: Female

DRUGS (1)
  1. CONCERTA [Suspect]
     Indication: DRUG USE FOR UNKNOWN INDICATION
     Dosage: 54 MG IN MORNING(AROUND 8 O'CLOCK) AND 18 MG IN THE AFTERNOON(AROUND 3 O'CLOCK)
     Route: 048

REACTIONS (6)
  - ALOPECIA [None]
  - CONTUSION [None]
  - DRUG DEPENDENCE [None]
  - DRY MOUTH [None]
  - FATIGUE [None]
  - WEIGHT DECREASED [None]
